FAERS Safety Report 25384935 (Version 1)
Quarter: 2025Q2

REPORT INFORMATION
  Report Type: Spontaneous
  Country: DE (occurrence: DE)
  Receive Date: 20250602
  Receipt Date: 20250602
  Transmission Date: 20250716
  Serious: Yes (Hospitalization, Other)
  Sender: DAIICHI
  Company Number: DE-DSJP-DS-2025-143925-DE

PATIENT
  Age: 78 Year
  Sex: Female

DRUGS (2)
  1. EDOXABAN TOSYLATE [Suspect]
     Active Substance: EDOXABAN TOSYLATE
     Indication: Atrial fibrillation
     Dosage: 1 DOSAGE FORM, QD
     Route: 065
  2. DRONEDARONE [Concomitant]
     Active Substance: DRONEDARONE
     Indication: Arrhythmia
     Route: 065

REACTIONS (2)
  - Liver function test increased [Unknown]
  - Cardiac ablation [Recovering/Resolving]

NARRATIVE: CASE EVENT DATE: 20250501
